FAERS Safety Report 25765677 (Version 1)
Quarter: 2025Q3

REPORT INFORMATION
  Report Type: Spontaneous
  Country: US (occurrence: US)
  Receive Date: 20250905
  Receipt Date: 20250905
  Transmission Date: 20251020
  Serious: No
  Sender: DOMPE FARMACEUTICI
  Company Number: US-FARMAPROD-202308-202404-1313

PATIENT
  Age: 32 Year
  Sex: Female
  Weight: 124.28 kg

DRUGS (43)
  1. OXERVATE [Suspect]
     Active Substance: CENEGERMIN-BKBJ
     Indication: Neurotrophic keratopathy
     Route: 047
     Dates: start: 20240403, end: 20240529
  2. OXERVATE [Suspect]
     Active Substance: CENEGERMIN-BKBJ
     Dates: start: 20241025
  3. HYDROCORTISONE [Concomitant]
     Active Substance: HYDROCORTISONE
  4. CETIRIZINE HCL [Concomitant]
     Active Substance: CETIRIZINE HYDROCHLORIDE
  5. FAMOTIDINE [Concomitant]
     Active Substance: FAMOTIDINE
  6. VITAMIN D2 [Concomitant]
     Active Substance: ERGOCALCIFEROL
  7. OCELLA [Concomitant]
     Active Substance: DROSPIRENONE\ETHINYL ESTRADIOL
  8. EPIPEN [Concomitant]
     Active Substance: EPINEPHRINE
  9. DICYCLOMINE HYDROCHLORIDE [Concomitant]
     Active Substance: DICYCLOMINE HYDROCHLORIDE
  10. VITAMIN D3 [Concomitant]
     Active Substance: CHOLECALCIFEROL
  11. VENTOLIN HFA [Concomitant]
     Active Substance: ALBUTEROL SULFATE
  12. BACLOFEN [Concomitant]
     Active Substance: BACLOFEN
  13. CARBAMAZEPINE [Concomitant]
     Active Substance: CARBAMAZEPINE
  14. TOPIRAMATE [Concomitant]
     Active Substance: TOPIRAMATE
  15. OLANZAPINE [Concomitant]
     Active Substance: OLANZAPINE
  16. LAMOTRIGINE [Concomitant]
     Active Substance: LAMOTRIGINE
  17. MEMANTINE [Concomitant]
     Active Substance: MEMANTINE
  18. ALBUTEROL SULFATE [Concomitant]
     Active Substance: ALBUTEROL SULFATE
  19. INDOMETHACIN [Concomitant]
     Active Substance: INDOMETHACIN
  20. KETOCONAZOLE [Concomitant]
     Active Substance: KETOCONAZOLE
  21. SPIRIVA RESPIMAT [Concomitant]
     Active Substance: TIOTROPIUM BROMIDE
  22. HYDROXYZINE HYDROCHLORIDE [Concomitant]
     Active Substance: HYDROXYZINE HYDROCHLORIDE
  23. MOXIFLOXACIN [Concomitant]
     Active Substance: MOXIFLOXACIN
  24. METOCLOPRAMIDE HYDROCHLORIDE [Concomitant]
     Active Substance: METOCLOPRAMIDE HYDROCHLORIDE
  25. ALBUTEROL SULFATE [Concomitant]
     Active Substance: ALBUTEROL SULFATE
  26. PROMETHAZINE HYDROCHLORIDE [Concomitant]
     Active Substance: PROMETHAZINE HYDROCHLORIDE
  27. MONTELUKAST SODIUM [Concomitant]
     Active Substance: MONTELUKAST SODIUM
  28. AZITHROMYCIN [Concomitant]
     Active Substance: AZITHROMYCIN
  29. METHYLPHENIDATE HYDROCHLORIDE [Concomitant]
     Active Substance: METHYLPHENIDATE HYDROCHLORIDE
  30. ATOMOXETINE HYDROCHLORIDE [Concomitant]
     Active Substance: ATOMOXETINE HYDROCHLORIDE
  31. ATOMOXETINE HYDROCHLORIDE [Concomitant]
     Active Substance: ATOMOXETINE HYDROCHLORIDE
  32. SYMBICORT [Concomitant]
     Active Substance: BUDESONIDE\FORMOTEROL FUMARATE DIHYDRATE
  33. DERMOTIC [Concomitant]
     Active Substance: FLUOCINOLONE ACETONIDE
  34. COLESTIPOL HYDROCHLORIDE [Concomitant]
     Active Substance: COLESTIPOL HYDROCHLORIDE
  35. TRAZODONE HCL [Concomitant]
     Active Substance: TRAZODONE HYDROCHLORIDE
  36. CARAFATE [Concomitant]
     Active Substance: SUCRALFATE
  37. ADVAIR HFA [Concomitant]
     Active Substance: FLUTICASONE PROPIONATE\SALMETEROL XINAFOATE
  38. DIPHENHYDRAMINE HYDROCHLORIDE [Concomitant]
     Active Substance: DIPHENHYDRAMINE HYDROCHLORIDE
  39. ACYCLOVIR [Concomitant]
     Active Substance: ACYCLOVIR
     Route: 048
  40. Artificial tears [Concomitant]
     Route: 047
     Dates: start: 20240306
  41. ALREX [Concomitant]
     Active Substance: LOTEPREDNOL ETABONATE
     Route: 047
     Dates: start: 20241201
  42. PREDNISOLONE [Concomitant]
     Active Substance: PREDNISOLONE
     Route: 047
     Dates: start: 20240314, end: 20240624
  43. EYSUVIS [Concomitant]
     Active Substance: LOTEPREDNOL ETABONATE
     Dates: start: 20240827, end: 20241107

REACTIONS (3)
  - Product dose omission issue [Unknown]
  - Product use complaint [Unknown]
  - Drug ineffective [Unknown]

NARRATIVE: CASE EVENT DATE: 20240405
